FAERS Safety Report 7732466-3 (Version None)
Quarter: 2011Q3

REPORT INFORMATION
  Report Type: 
  Country: None (occurrence: None)
  Receive Date: 20110906
  Receipt Date: 20110823
  Transmission Date: 20111222
  Serious: Yes (Hospitalization, Other)
  Sender: FDA-Public Use
  Company Number: CA-ELI_LILLY_AND_COMPANY-CA201108006910

PATIENT
  Sex: Male
  Weight: 101 kg

DRUGS (9)
  1. LITHIUM CARBONATE [Concomitant]
  2. ZYPREXA [Suspect]
     Dosage: 20 MG, QD
  3. ZYPREXA ZYDIS [Suspect]
     Indication: SCHIZOPHRENIA, PARANOID TYPE
     Dosage: 10 MG, UNKNOWN
  4. ZOLOFT [Concomitant]
  5. ZYPREXA [Suspect]
     Indication: SCHIZOPHRENIA, PARANOID TYPE
     Dosage: 10 MG, UNKNOWN
  6. ZYPREXA [Suspect]
     Dosage: 5 MG, UNKNOWN
  7. SEROQUEL [Concomitant]
  8. ATIVAN [Concomitant]
  9. VALPROATE SODIUM [Concomitant]

REACTIONS (18)
  - CARDIAC FAILURE CONGESTIVE [None]
  - LOBAR PNEUMONIA [None]
  - ACUTE MYOCARDIAL INFARCTION [None]
  - POOR PERIPHERAL CIRCULATION [None]
  - TOOTH ABSCESS [None]
  - ERECTILE DYSFUNCTION [None]
  - VISION BLURRED [None]
  - HAEMATOCHEZIA [None]
  - TYPE 2 DIABETES MELLITUS [None]
  - BRONCHITIS [None]
  - SUBCUTANEOUS ABSCESS [None]
  - HEPATIC ENZYME INCREASED [None]
  - HYPERLIPIDAEMIA [None]
  - WEIGHT INCREASED [None]
  - CORONARY ARTERY DISEASE [None]
  - DERMATITIS INFECTED [None]
  - HYPOACUSIS [None]
  - SEVERE ACUTE RESPIRATORY SYNDROME [None]
